FAERS Safety Report 9508672 (Version 2)
Quarter: 2013Q3

REPORT INFORMATION
  Report Type: Spontaneous
  Country: US (occurrence: US)
  Receive Date: 20130909
  Receipt Date: 20130927
  Transmission Date: 20140515
  Serious: Yes (Death)
  Sender: FDA-Public Use
  Company Number: US-GLAXOSMITHKLINE-A1040450A

PATIENT
  Age: 18 Year
  Sex: Male

DRUGS (1)
  1. TYKERB [Suspect]
     Indication: BONE CANCER
     Dosage: 1250TAB PER DAY
     Route: 048
     Dates: start: 20130816

REACTIONS (1)
  - Death [Fatal]
